FAERS Safety Report 5687510-4 (Version None)
Quarter: 2008Q1

REPORT INFORMATION
  Report Type: 
  Country: None (occurrence: None)
  Receive Date: 20080328
  Receipt Date: 20070424
  Transmission Date: 20080703
  Serious: No
  Sender: FDA-Public Use
  Company Number: US-BAYER-US-2007-014783

PATIENT
  Age: 29 Year
  Sex: Female
  Weight: 113 kg

DRUGS (4)
  1. MIRENA [Suspect]
     Indication: CONTRACEPTION
     Route: 015
     Dates: start: 20070106
  2. LAMICTAL ^BURROUGHS WELLCOME^ [Concomitant]
     Dosage: UNIT DOSE: 200 MG
  3. WELLBUTRIN [Concomitant]
     Dosage: UNIT DOSE: 150 MG
  4. PREMARIN [Concomitant]
     Dosage: UNIT DOSE: 0.625 MG

REACTIONS (1)
  - GENITAL HAEMORRHAGE [None]
